FAERS Safety Report 5833679-8 (Version None)
Quarter: 2008Q3

REPORT INFORMATION
  Report Type: 
  Country: None (occurrence: None)
  Receive Date: 20080804
  Receipt Date: 20080804
  Transmission Date: 20090109
  Serious: Yes (Other)
  Sender: FDA-Public Use
  Company Number: None

PATIENT
  Sex: Female
  Weight: 58.514 kg

DRUGS (2)
  1. EFFEXOR XR 347.5 MG WYETH [Suspect]
     Indication: ANXIETY
  2. EFFEXOR XR 347.5 MG WYETH [Suspect]
     Indication: DEPRESSION

REACTIONS (8)
  - ACTIVITIES OF DAILY LIVING IMPAIRED [None]
  - ANGER [None]
  - CRYING [None]
  - DRUG DEPENDENCE [None]
  - NAUSEA [None]
  - PARAESTHESIA [None]
  - VERTIGO [None]
  - WITHDRAWAL SYNDROME [None]
